FAERS Safety Report 19844970 (Version 3)
Quarter: 2021Q4

REPORT INFORMATION
  Report Type: Spontaneous
  Country: US (occurrence: US)
  Receive Date: 20210917
  Receipt Date: 20211208
  Transmission Date: 20220303
  Serious: Yes (Hospitalization, Other)
  Sender: FDA-Public Use
  Company Number: US-JNJFOC-20210919541

PATIENT
  Age: 5 Decade
  Sex: Female

DRUGS (5)
  1. ELMIRON [Suspect]
     Active Substance: PENTOSAN POLYSULFATE SODIUM
     Indication: Cystitis interstitial
     Route: 048
     Dates: start: 1996, end: 1998
  2. LYRICA [Concomitant]
     Active Substance: PREGABALIN
     Indication: Fibromyalgia
     Dates: start: 1998
  3. LYRICA [Concomitant]
     Active Substance: PREGABALIN
     Indication: Neuropathy peripheral
  4. PREMARIN [Concomitant]
     Active Substance: ESTROGENS, CONJUGATED
     Indication: Hormone replacement therapy
     Dates: start: 1979
  5. PREMARIN [Concomitant]
     Active Substance: ESTROGENS, CONJUGATED
     Dates: start: 1985

REACTIONS (5)
  - Retinal pigmentation [Unknown]
  - Cystitis bacterial [Unknown]
  - Migraine [Not Recovered/Not Resolved]
  - Liver disorder [Unknown]
  - Alopecia [Unknown]

NARRATIVE: CASE EVENT DATE: 19990101
